FAERS Safety Report 15469507 (Version 1)
Quarter: 2018Q4

REPORT INFORMATION
  Report Type: Spontaneous
  Country: US (occurrence: US)
  Receive Date: 20181005
  Receipt Date: 20181005
  Transmission Date: 20190205
  Serious: Yes (Other)
  Sender: FDA-Public Use
  Company Number: US-JNJFOC-20181001431

PATIENT
  Sex: Female

DRUGS (1)
  1. TOPAMAX [Suspect]
     Active Substance: TOPIRAMATE
     Indication: PARTIAL SEIZURES
     Route: 048

REACTIONS (4)
  - Gastric bypass [Unknown]
  - Headache [Unknown]
  - Weight decreased [Unknown]
  - Malabsorption [Unknown]

NARRATIVE: CASE EVENT DATE: 2018
